FAERS Safety Report 6748902-5 (Version None)
Quarter: 2010Q2

REPORT INFORMATION
  Report Type: 
  Country: None (occurrence: None)
  Receive Date: 20100601
  Receipt Date: 20100514
  Transmission Date: 20101027
  Serious: Yes (Hospitalization, Other)
  Sender: FDA-Public Use
  Company Number: US-BAYER-200929524NA

PATIENT
  Age: 45 Year
  Sex: Female
  Weight: 72 kg

DRUGS (5)
  1. YAZ [Suspect]
     Indication: DRUG USE FOR UNKNOWN INDICATION
     Route: 048
     Dates: start: 20070701, end: 20080501
  2. YASMIN [Suspect]
     Indication: CONTRACEPTION
     Dosage: ??-APR-2007 TO JUN-2007
     Route: 048
     Dates: start: 20070401, end: 20070601
  3. LIPITOR [Concomitant]
     Route: 065
     Dates: start: 19990101
  4. MOTRIN [Concomitant]
     Route: 065
     Dates: start: 20070101, end: 20100101
  5. LEVOTHYROXINE SODIUM [Concomitant]
     Route: 065
     Dates: start: 19990101

REACTIONS (5)
  - CEREBROVASCULAR ACCIDENT [None]
  - EMOTIONAL DISTRESS [None]
  - MOTOR DYSFUNCTION [None]
  - MUSCULAR WEAKNESS [None]
  - PAIN [None]
